FAERS Safety Report 10169760 (Version 1)
Quarter: 2014Q2

REPORT INFORMATION
  Report Type: Spontaneous
  Country: FR (occurrence: FR)
  Receive Date: 20140513
  Receipt Date: 20140513
  Transmission Date: 20141212
  Serious: Yes (Hospitalization)
  Sender: FDA-Public Use
  Company Number: FR-ASTRAZENECA-2014SE30848

PATIENT
  Age: 78 Year
  Sex: Female

DRUGS (10)
  1. CRESTOR [Suspect]
     Route: 048
  2. DACOGEN [Suspect]
     Dosage: 20 MG/M? EVERY DAY FROM DAY 1 TO DAY 5, EVERY 28 DAYS
     Route: 042
     Dates: start: 20130812, end: 20140221
  3. SEVIKAR [Concomitant]
  4. KARDEGIC [Concomitant]
  5. NEBIVOLOL [Concomitant]
  6. NOVONORM [Concomitant]
  7. ADANCOR [Concomitant]
  8. PANTOPRAZOLE [Concomitant]
  9. PARACETAMOL [Concomitant]
  10. TRANSILANE [Concomitant]

REACTIONS (11)
  - Lung disorder [Not Recovered/Not Resolved]
  - Pyrexia [Not Recovered/Not Resolved]
  - Hypoxia [Not Recovered/Not Resolved]
  - Renal failure [Unknown]
  - Dyspepsia [Unknown]
  - Somnolence [Unknown]
  - Dry mouth [Unknown]
  - Weight decreased [Unknown]
  - Influenza virus test positive [Unknown]
  - Creatinine renal clearance decreased [Unknown]
  - Platelet count decreased [Unknown]
